FAERS Safety Report 18555472 (Version 1)
Quarter: 2020Q4

REPORT INFORMATION
  Report Type: Spontaneous
  Country: US (occurrence: US)
  Receive Date: 20201127
  Receipt Date: 20201127
  Transmission Date: 20210114
  Serious: Yes (Other)
  Sender: FDA-Public Use
  Company Number: US-SA-2020SA335948

PATIENT

DRUGS (1)
  1. ADMELOG [Suspect]
     Active Substance: INSULIN LISPRO
     Dosage: UNKNOWN
     Route: 065

REACTIONS (2)
  - Diabetes mellitus inadequate control [Unknown]
  - Drug ineffective [Unknown]
